FAERS Safety Report 24060361 (Version 1)
Quarter: 2024Q3

REPORT INFORMATION
  Report Type: Spontaneous
  Country: US (occurrence: US)
  Receive Date: 20240708
  Receipt Date: 20240708
  Transmission Date: 20241016
  Serious: Yes (Hospitalization)
  Sender: MYLAN
  Company Number: US-MYLANLABS-2024M1061599

PATIENT
  Age: 76 Year
  Sex: Male

DRUGS (1)
  1. DAPTOMYCIN [Suspect]
     Active Substance: DAPTOMYCIN
     Indication: Device related infection
     Dosage: A FOUR-WEEK COURSE
     Route: 065

REACTIONS (2)
  - Eosinophilic pleural effusion [Recovering/Resolving]
  - Eosinophilic pneumonia acute [Recovering/Resolving]
